FAERS Safety Report 15566815 (Version 3)
Quarter: 2019Q1

REPORT INFORMATION
  Report Type: Spontaneous
  Country: US (occurrence: US)
  Receive Date: 20181030
  Receipt Date: 20190225
  Transmission Date: 20190417
  Serious: No
  Sender: FDA-Public Use
  Company Number: US-PFIZER INC-2018436409

PATIENT
  Age: 71 Year
  Sex: Female
  Weight: 48.8 kg

DRUGS (1)
  1. LYRICA [Suspect]
     Active Substance: PREGABALIN
     Indication: NEUROPATHY PERIPHERAL
     Dosage: 75 MG, 2X/DAY (ONE AT NOON AND ONE BETWEEN 5-7)
     Route: 048

REACTIONS (9)
  - Restlessness [Not Recovered/Not Resolved]
  - Gait inability [Recovering/Resolving]
  - Loss of personal independence in daily activities [Unknown]
  - Sleep disorder [Unknown]
  - Dysgraphia [Unknown]
  - Joint swelling [Recovering/Resolving]
  - Fatigue [Not Recovered/Not Resolved]
  - Discomfort [Unknown]
  - Nausea [Recovered/Resolved]

NARRATIVE: CASE EVENT DATE: 201810
